FAERS Safety Report 13105949 (Version 1)
Quarter: 2017Q1

REPORT INFORMATION
  Report Type: Report from Study
  Country: US (occurrence: US)
  Receive Date: 20170111
  Receipt Date: 20170111
  Transmission Date: 20170428
  Serious: Yes (Hospitalization)
  Sender: FDA-Public Use
  Company Number: US-JNJFOC-20170108422

PATIENT
  Sex: Male

DRUGS (1)
  1. IMBRUVICA [Suspect]
     Active Substance: IBRUTINIB
     Indication: LYMPHOCYTIC LEUKAEMIA
     Route: 048

REACTIONS (6)
  - Incorrect dose administered [Recovered/Resolved]
  - Constipation [Not Recovered/Not Resolved]
  - Prostatomegaly [Unknown]
  - Dehydration [Not Recovered/Not Resolved]
  - Shock [Not Recovered/Not Resolved]
  - Off label use [Recovered/Resolved]
